FAERS Safety Report 7054406-5 (Version None)
Quarter: 2010Q4

REPORT INFORMATION
  Report Type: 
  Country: None (occurrence: None)
  Receive Date: 20101020
  Receipt Date: 20101013
  Transmission Date: 20110411
  Serious: Yes (Hospitalization, Other)
  Sender: FDA-Public Use
  Company Number: FR-ROCHE-734022

PATIENT
  Sex: Female

DRUGS (10)
  1. PEGASYS [Suspect]
     Indication: HEPATITIS C
     Route: 058
     Dates: start: 20081208, end: 20090511
  2. COPEGUS [Suspect]
     Indication: HEPATITIS C
     Route: 048
     Dates: start: 20081208, end: 20090511
  3. NEORECORMON [Suspect]
     Indication: ANAEMIA
     Route: 065
     Dates: start: 20090114, end: 20090525
  4. GLUCOPHAGE [Concomitant]
  5. CRESTOR [Concomitant]
  6. PRETERAX [Concomitant]
  7. CARDENSIEL [Concomitant]
  8. PLAVIX [Concomitant]
  9. AMAREL [Concomitant]
  10. IMOVANE [Concomitant]

REACTIONS (2)
  - ANAEMIA [None]
  - BREAST CANCER [None]
